FAERS Safety Report 21900899 (Version 2)
Quarter: 2023Q1

REPORT INFORMATION
  Report Type: Spontaneous
  Country: US (occurrence: US)
  Receive Date: 20230123
  Receipt Date: 20230125
  Transmission Date: 20230418
  Serious: Yes (Disabling)
  Sender: FDA-Public Use
  Company Number: US-ALLERGAN-2234974US

PATIENT
  Age: 60 Year
  Sex: Female

DRUGS (3)
  1. BOTOX COSMETIC [Suspect]
     Active Substance: ONABOTULINUMTOXINA
     Indication: Skin wrinkling
     Dosage: 19.5 UNITS, SINGLE
     Dates: start: 20221006
  2. BOTOX COSMETIC [Suspect]
     Active Substance: ONABOTULINUMTOXINA
     Indication: Skin wrinkling
     Dosage: 4 UNITS, SINGLE
  3. COVID-19 VACCINE [Concomitant]
     Indication: Product used for unknown indication

REACTIONS (11)
  - Disability [Unknown]
  - Visual impairment [Unknown]
  - Joint range of motion decreased [Not Recovered/Not Resolved]
  - Asthenopia [Unknown]
  - Diarrhoea [Unknown]
  - Fatigue [Unknown]
  - Headache [Unknown]
  - Vision blurred [Unknown]
  - Vertigo [Unknown]
  - Nausea [Unknown]
  - Brow ptosis [Unknown]

NARRATIVE: CASE EVENT DATE: 20221014
